FAERS Safety Report 22151273 (Version 1)
Quarter: 2023Q1

REPORT INFORMATION
  Report Type: Spontaneous
  Country: CN (occurrence: CN)
  Receive Date: 20230329
  Receipt Date: 20230329
  Transmission Date: 20230418
  Serious: Yes (Other)
  Sender: FDA-Public Use
  Company Number: CN-009507513-2303CHN008219

PATIENT
  Age: 76 Year
  Sex: Male
  Weight: 50 kg

DRUGS (2)
  1. CILASTATIN SODIUM\IMIPENEM [Suspect]
     Active Substance: CILASTATIN SODIUM\IMIPENEM
     Indication: Infection
     Dosage: 1G Q6H
     Route: 041
     Dates: start: 20230220, end: 20230225
  2. CILASTATIN SODIUM\IMIPENEM [Suspect]
     Active Substance: CILASTATIN SODIUM\IMIPENEM
     Dosage: 1G Q8H
     Route: 041
     Dates: start: 20230226, end: 20230228

REACTIONS (2)
  - Delirium [Recovering/Resolving]
  - Blood creatinine decreased [Unknown]

NARRATIVE: CASE EVENT DATE: 20230224
